FAERS Safety Report 26193917 (Version 1)
Quarter: 2025Q4

REPORT INFORMATION
  Report Type: Spontaneous
  Country: CN (occurrence: CN)
  Receive Date: 20251224
  Receipt Date: 20251224
  Transmission Date: 20260117
  Serious: Yes (Hospitalization, Other)
  Sender: SEPTODONT
  Company Number: None

PATIENT
  Age: 37 Year
  Sex: Male
  Weight: 70 kg

DRUGS (2)
  1. ARTICAINE\EPINEPHRINE [Suspect]
     Active Substance: ARTICAINE\EPINEPHRINE
     Indication: Dental local anaesthesia
     Dosage: 1.7ML DOSAGE FORM TOTAL
     Route: 004
     Dates: start: 20251211, end: 20251211
  2. ROPIVACAINE HYDROCHLORIDE [Suspect]
     Active Substance: ROPIVACAINE HYDROCHLORIDE
     Indication: Nerve block
     Route: 004
     Dates: start: 20251211

REACTIONS (5)
  - Hypersensitivity [Recovering/Resolving]
  - Dizziness [Unknown]
  - Nausea [Unknown]
  - Abdominal discomfort [Recovering/Resolving]
  - Vomiting [Recovered/Resolved]

NARRATIVE: CASE EVENT DATE: 20251211
